FAERS Safety Report 4950039-2 (Version None)
Quarter: 2006Q1

REPORT INFORMATION
  Report Type: 
  Country: None (occurrence: None)
  Receive Date: 20060320
  Receipt Date: 20060320
  Transmission Date: 20060701
  Serious: Yes (Death)
  Sender: FDA-Public Use
  Company Number: None

PATIENT
  Age: 58 Year
  Sex: Female

DRUGS (3)
  1. GEMZAR [Suspect]
     Indication: PANCREATIC CARCINOMA METASTATIC
     Dosage: 1425 MG    WEEKLY   IV DRIP
     Route: 041
     Dates: start: 20050715, end: 20050721
  2. TAXOTERE [Suspect]
     Indication: PANCREATIC CARCINOMA METASTATIC
     Dosage: 57 MG  WEEKLY   IV DRIP
     Route: 041
     Dates: start: 20050715, end: 20050721
  3. XELODA [Suspect]
     Dosage: DAILY  PO
     Route: 048
     Dates: start: 20050711, end: 20050724

REACTIONS (5)
  - ACUTE RESPIRATORY DISTRESS SYNDROME [None]
  - ASCITES [None]
  - MALIGNANT NEOPLASM PROGRESSION [None]
  - METASTASES TO LIVER [None]
  - PNEUMONIA ASPIRATION [None]
